FAERS Safety Report 10798036 (Version 2)
Quarter: 2016Q4

REPORT INFORMATION
  Report Type: Spontaneous
  Country: US (occurrence: US)
  Receive Date: 20150216
  Receipt Date: 20161005
  Transmission Date: 20170206
  Serious: No
  Sender: FDA-Public Use
  Company Number: US-PFIZER INC-2015055506

PATIENT
  Age: 56 Year
  Sex: Male
  Weight: 71.66 kg

DRUGS (10)
  1. FOLIC ACID. [Concomitant]
     Active Substance: FOLIC ACID
     Dosage: 400 MG, 1X/DAY
  2. PREDNISONE. [Concomitant]
     Active Substance: PREDNISONE
     Dosage: 10 MG, MONTHLY
  3. AZATHIOPRINE. [Concomitant]
     Active Substance: AZATHIOPRINE
     Dosage: 50 MG, 2X/DAY
  4. LYRICA [Suspect]
     Active Substance: PREGABALIN
     Indication: ANGIOPATHY
  5. LYRICA [Suspect]
     Active Substance: PREGABALIN
     Indication: HERPES ZOSTER
  6. COREG [Concomitant]
     Active Substance: CARVEDILOL
     Dosage: 3 MG, 2X/DAY
  7. LYRICA [Suspect]
     Active Substance: PREGABALIN
     Indication: ARTHRITIS
     Dosage: 150 MG, 3X/DAY
     Route: 048
     Dates: start: 20090809
  8. LYRICA [Suspect]
     Active Substance: PREGABALIN
     Indication: NEUROPATHY PERIPHERAL
  9. LYRICA [Suspect]
     Active Substance: PREGABALIN
     Indication: POST HERPETIC NEURALGIA
  10. TEMAZEPAM. [Concomitant]
     Active Substance: TEMAZEPAM
     Indication: SLEEP DISORDER
     Dosage: 15 MG, 1X/DAY (AT BED TIME)

REACTIONS (2)
  - Pain [Unknown]
  - Drug ineffective [Not Recovered/Not Resolved]

NARRATIVE: CASE EVENT DATE: 20090809
